FAERS Safety Report 12189936 (Version 6)
Quarter: 2016Q3

REPORT INFORMATION
  Report Type: Spontaneous
  Country: JP (occurrence: JP)
  Receive Date: 20160318
  Receipt Date: 20160729
  Transmission Date: 20161109
  Serious: Yes (Life-Threatening, Disabling, Other)
  Sender: FDA-Public Use
  Company Number: JP-UCBSA-2016009520

PATIENT
  Age: 10 Year
  Sex: Female
  Weight: 22 kg

DRUGS (7)
  1. E KEPPRA [Suspect]
     Active Substance: LEVETIRACETAM
     Indication: PARTIAL SEIZURES
     Dosage: 20 MG/KG, ONCE DAILY (QD)
     Route: 048
     Dates: start: 20151128, end: 20151130
  2. SELENICA-R [Suspect]
     Active Substance: VALPROATE SODIUM
     Dosage: 300 MG DAILY DOSE
     Route: 048
     Dates: start: 20160209, end: 20160225
  3. E KEPPRA [Suspect]
     Active Substance: LEVETIRACETAM
     Dosage: 400 MG, ONCE DAILY (QD) (22 MG/KG/DAY)
     Route: 048
     Dates: start: 20160209, end: 20160225
  4. SELENICA-R [Suspect]
     Active Substance: VALPROATE SODIUM
     Dosage: 200 MG DAILY DOSE
     Route: 048
     Dates: start: 20140315, end: 20160208
  5. SELENICA-R [Suspect]
     Active Substance: VALPROATE SODIUM
     Indication: PARTIAL SEIZURES
     Dosage: 150 MG DAILY DOSE
     Route: 048
     Dates: start: 20140222, end: 20140314
  6. E KEPPRA [Suspect]
     Active Substance: LEVETIRACETAM
     Dosage: 15 MG/KG, ONCE DAILY (QD)
     Route: 048
     Dates: start: 20151201, end: 20160208
  7. DOPAMINE [Concomitant]
     Active Substance: DOPAMINE\DOPAMINE HYDROCHLORIDE
     Indication: PRODUCT USED FOR UNKNOWN INDICATION
     Dosage: UNK

REACTIONS (4)
  - Cardio-respiratory arrest [Not Recovered/Not Resolved]
  - Brain death [Not Recovered/Not Resolved]
  - Somnolence [Unknown]
  - Interstitial lung disease [Recovered/Resolved with Sequelae]

NARRATIVE: CASE EVENT DATE: 2015
